FAERS Safety Report 5959353-5 (Version None)
Quarter: 2008Q4

REPORT INFORMATION
  Report Type: 
  Country: None (occurrence: None)
  Receive Date: 20081119
  Receipt Date: 20081119
  Transmission Date: 20090506
  Serious: Yes (Other)
  Sender: FDA-Public Use
  Company Number: None

PATIENT
  Age: 53 Year
  Sex: Male
  Weight: 74.8435 kg

DRUGS (1)
  1. CHANTIX [Suspect]
     Indication: SMOKING CESSATION THERAPY
     Dosage: 1MG  1 2X DAILY PO, 2ND CORSE
     Route: 048
     Dates: start: 20080611, end: 20080911

REACTIONS (15)
  - AGITATION [None]
  - ANHEDONIA [None]
  - ANXIETY [None]
  - APATHY [None]
  - ASTHENIA [None]
  - CONSTIPATION [None]
  - FEAR [None]
  - FEELING ABNORMAL [None]
  - HYPOPHAGIA [None]
  - INSOMNIA [None]
  - MENTAL DISORDER [None]
  - NIGHTMARE [None]
  - SUICIDAL IDEATION [None]
  - WEIGHT DECREASED [None]
  - WITHDRAWAL SYNDROME [None]
